FAERS Safety Report 8247790-8 (Version None)
Quarter: 2012Q1

REPORT INFORMATION
  Report Type: 
  Country: None (occurrence: None)
  Receive Date: 20120330
  Receipt Date: 20120326
  Transmission Date: 20120608
  Serious: Yes (Death, Life-Threatening, Hospitalization, Other)
  Sender: FDA-Public Use
  Company Number: DE-ELI_LILLY_AND_COMPANY-DE201102004038

PATIENT
  Age: 60 Year
  Sex: Male
  Weight: 95 kg

DRUGS (7)
  1. METOPROLOL TARTRATE [Concomitant]
     Indication: HYPERTENSION
     Dosage: UNK, UNK
     Dates: end: 20110127
  2. TPN [Concomitant]
     Indication: DECREASED APPETITE
     Dates: start: 20110127, end: 20110205
  3. EPROSARTAN MESILATE [Concomitant]
     Indication: HYPERTENSION
     Dosage: UNK, UNK
     Dates: end: 20110127
  4. CISPLATIN [Suspect]
     Indication: NON-SMALL CELL LUNG CANCER STAGE IV
     Dosage: 150 MG, OTHER
     Dates: start: 20110121, end: 20110121
  5. ASPIRIN [Concomitant]
     Indication: INFARCTION
     Dosage: 100 MG, UNK
     Dates: end: 20110208
  6. PEMETREXED [Suspect]
     Indication: NON-SMALL CELL LUNG CANCER STAGE IV
     Dosage: 1000 MG, OTHER
     Dates: start: 20110121, end: 20110121
  7. CERNEVIT-12 [Concomitant]
     Indication: DECREASED APPETITE
     Dates: start: 20110127, end: 20110205

REACTIONS (3)
  - SYNCOPE [None]
  - LEUKOPENIA [None]
  - SEPTIC SHOCK [None]
